FAERS Safety Report 25187552 (Version 2)
Quarter: 2025Q2

REPORT INFORMATION
  Report Type: Report from Study
  Country: US (occurrence: US)
  Receive Date: 20250411
  Receipt Date: 20250417
  Transmission Date: 20250716
  Serious: Yes (Other)
  Sender: ASTELLAS
  Company Number: US-ASTELLAS-2025-AER-019252

PATIENT
  Age: 84 Year
  Sex: Male

DRUGS (1)
  1. GILTERITINIB [Suspect]
     Active Substance: GILTERITINIB
     Indication: Acute myeloid leukaemia
     Route: 048
     Dates: start: 202503

REACTIONS (13)
  - Platelet count decreased [Unknown]
  - Haemoglobin decreased [Unknown]
  - Differentiation syndrome [Unknown]
  - Asthenia [Unknown]
  - Dyspnoea [Unknown]
  - Vision blurred [Unknown]
  - Blood pressure decreased [Unknown]
  - Pallor [Unknown]
  - Yellow skin [Unknown]
  - Dizziness [Unknown]
  - Insomnia [Unknown]
  - Arthralgia [Unknown]
  - Fatigue [Unknown]

NARRATIVE: CASE EVENT DATE: 20250301
